FAERS Safety Report 26206533 (Version 1)
Quarter: 2025Q4

REPORT INFORMATION
  Report Type: Spontaneous
  Country: US (occurrence: US)
  Receive Date: 20251229
  Receipt Date: 20251229
  Transmission Date: 20260118
  Serious: Yes (Other)
  Sender: SUPERNUS PHARMACEUTICALS, INC
  Company Number: US-SUP-SUP202512-005257

PATIENT
  Age: 29 Year
  Sex: Male

DRUGS (1)
  1. QELBREE [Suspect]
     Active Substance: VILOXAZINE HYDROCHLORIDE
     Indication: Product used for unknown indication
     Dosage: 200MG

REACTIONS (3)
  - Erectile dysfunction [Unknown]
  - Fatigue [Unknown]
  - Dry mouth [Unknown]
